FAERS Safety Report 22238317 (Version 1)
Quarter: 2023Q2

REPORT INFORMATION
  Report Type: Spontaneous
  Country: FI (occurrence: None)
  Receive Date: 20230421
  Receipt Date: 20230421
  Transmission Date: 20230721
  Serious: Yes (Other)
  Sender: FDA-Public Use
  Company Number: FI-ROCHE-3334703

PATIENT
  Age: 71 Year
  Sex: Male

DRUGS (1)
  1. PEGASYS [Suspect]
     Active Substance: PEGINTERFERON ALFA-2A
     Indication: Essential thrombocythaemia
     Route: 058
     Dates: start: 202211, end: 20230310

REACTIONS (2)
  - Autoimmune haemolytic anaemia [Not Recovered/Not Resolved]
  - Off label use [Unknown]

NARRATIVE: CASE EVENT DATE: 20230301
